FAERS Safety Report 6772488-2 (Version None)
Quarter: 2010Q2

REPORT INFORMATION
  Report Type: 
  Country: None (occurrence: None)
  Receive Date: 20100616
  Receipt Date: 20100301
  Transmission Date: 20101027
  Serious: No
  Sender: FDA-Public Use
  Company Number: US-ASTRAZENECA-2010SE08720

PATIENT
  Age: 30 Month
  Sex: Male
  Weight: 13.2 kg

DRUGS (4)
  1. PULMICORT RESPULES [Suspect]
     Indication: ASTHMA
     Route: 055
     Dates: start: 20090801
  2. ALBUTEROL [Concomitant]
  3. NASONEX [Concomitant]
  4. ZYRTEC [Concomitant]

REACTIONS (1)
  - DENTAL CARIES [None]
